FAERS Safety Report 14560632 (Version 2)
Quarter: 2018Q1

REPORT INFORMATION
  Report Type: Spontaneous
  Country: US (occurrence: US)
  Receive Date: 20180222
  Receipt Date: 20180301
  Transmission Date: 20180509
  Serious: Yes (Other)
  Sender: FDA-Public Use
  Company Number: US-ALKEM LABORATORIES LIMITED-US-ALKEM-2018-00692

PATIENT
  Age: 48 Year
  Sex: Female

DRUGS (1)
  1. LAMOTRIGINE. [Suspect]
     Active Substance: LAMOTRIGINE
     Indication: PRODUCT USED FOR UNKNOWN INDICATION
     Dosage: 7.5 G, UNK
     Route: 065

REACTIONS (5)
  - Circulatory collapse [Recovered/Resolved]
  - Status epilepticus [Recovered/Resolved]
  - Overdose [Unknown]
  - Conduction disorder [Recovered/Resolved]
  - Cardiac arrest [Recovered/Resolved]
